FAERS Safety Report 11113213 (Version 1)
Quarter: 2015Q2

REPORT INFORMATION
  Report Type: Spontaneous
  Country: US (occurrence: US)
  Receive Date: 20150514
  Receipt Date: 20150514
  Transmission Date: 20150821
  Serious: No
  Sender: FDA-Public Use
  Company Number: US-TEVA-562061ACC

PATIENT
  Age: 19 Year
  Sex: Female
  Weight: 65.83 kg

DRUGS (4)
  1. CLARINEX [Concomitant]
     Active Substance: DESLORATADINE
  2. NASONEX [Concomitant]
     Active Substance: MOMETASONE FUROATE
  3. PARAGARD T 380A [Suspect]
     Active Substance: COPPER
     Indication: CONTRACEPTION
     Route: 015
     Dates: start: 20150430, end: 20150504
  4. VENTOLIN [Concomitant]
     Active Substance: ALBUTEROL SULFATE

REACTIONS (1)
  - Device expulsion [Recovered/Resolved]

NARRATIVE: CASE EVENT DATE: 20150504
